FAERS Safety Report 17895627 (Version 1)
Quarter: 2020Q2

REPORT INFORMATION
  Report Type: Spontaneous
  Country: US (occurrence: US)
  Receive Date: 20200615
  Receipt Date: 20200615
  Transmission Date: 20200714
  Serious: No
  Sender: FDA-Public Use
  Company Number: US-BEH-2020118226

PATIENT
  Age: 4 Year
  Sex: Male

DRUGS (1)
  1. HIZENTRA [Suspect]
     Active Substance: HUMAN IMMUNOGLOBULIN G
     Indication: HYPOGAMMAGLOBULINAEMIA
     Dosage: 3 GRAM, QW
     Route: 058
     Dates: start: 20200221

REACTIONS (4)
  - No adverse event [Unknown]
  - Product administration error [Unknown]
  - Infusion site pain [Unknown]
  - Infusion site haemorrhage [Unknown]
